FAERS Safety Report 22726501 (Version 3)
Quarter: 2023Q4

REPORT INFORMATION
  Report Type: Report from Study
  Country: JP (occurrence: JP)
  Receive Date: 20230720
  Receipt Date: 20231215
  Transmission Date: 20240110
  Serious: Yes (Hospitalization)
  Sender: FDA-Public Use
  Company Number: JP-ABBVIE-19K-087-2985535-00

PATIENT
  Age: 73 Year
  Sex: Female
  Weight: 39 kg

DRUGS (5)
  1. CARBIDOPA\LEVODOPA [Suspect]
     Active Substance: CARBIDOPA\LEVODOPA
     Indication: Parkinson^s disease
     Dosage: CD: 2.1 ML/HR?MD: 7 ML, CD: 2.1 ML/HR ?- 16 HRS, ED: 0.9 ML/UNIT ?- 3
     Route: 050
     Dates: start: 20190909, end: 20210112
  2. CARBIDOPA\LEVODOPA [Suspect]
     Active Substance: CARBIDOPA\LEVODOPA
  3. CABERGOLINE [Concomitant]
     Active Substance: CABERGOLINE
     Indication: Parkinson^s disease
     Dosage: 1 MILLIGRAM
     Route: 048
  4. CARBIDOPA AND LEVODOPA [Concomitant]
     Active Substance: CARBIDOPA\LEVODOPA
     Indication: Parkinson^s disease
     Dosage: 100 MILLIGRAM?CARBIDOPA HYDRATE
     Route: 048
  5. CARBIDOPA AND LEVODOPA [Concomitant]
     Active Substance: CARBIDOPA\LEVODOPA
     Indication: Parkinson^s disease
     Dosage: CARBIDOPA HYDRATE
     Route: 048
     Dates: start: 200008

REACTIONS (23)
  - Psychiatric symptom [Unknown]
  - Mobility decreased [Unknown]
  - Device dislocation [Recovered/Resolved]
  - Fall [Recovered/Resolved]
  - Stoma site discharge [Not Recovered/Not Resolved]
  - Drug ineffective [Unknown]
  - Musculoskeletal stiffness [Not Recovered/Not Resolved]
  - Dyskinesia [Not Recovered/Not Resolved]
  - Stoma site pain [Unknown]
  - Stoma site haemorrhage [Unknown]
  - Stoma site inflammation [Unknown]
  - Medical device discomfort [Unknown]
  - Stoma site induration [Unknown]
  - Anxiety [Unknown]
  - Insomnia [Unknown]
  - Hyperaesthesia [Unknown]
  - Feeling cold [Unknown]
  - Skin laceration [Unknown]
  - Device dislocation [Unknown]
  - Gastrointestinal stoma complication [Unknown]
  - Stoma site discomfort [Unknown]
  - Hallucination [Unknown]
  - Stoma site hypergranulation [Recovering/Resolving]

NARRATIVE: CASE EVENT DATE: 20190101
